FAERS Safety Report 9790695 (Version 4)
Quarter: 2014Q1

REPORT INFORMATION
  Report Type: Report from Study
  Country: JP (occurrence: JP)
  Receive Date: 20131231
  Receipt Date: 20140331
  Transmission Date: 20141002
  Serious: Yes (Death)
  Sender: FDA-Public Use
  Company Number: JP-GLAXOSMITHKLINE-B0956008A

PATIENT
  Age: 91 Year
  Sex: Female
  Weight: 33 kg

DRUGS (21)
  1. REVOLADE [Suspect]
     Indication: IMMUNE THROMBOCYTOPENIC PURPURA
     Route: 048
     Dates: start: 20121207, end: 20121220
  2. REVOLADE [Suspect]
     Indication: IMMUNE THROMBOCYTOPENIC PURPURA
     Route: 048
     Dates: start: 20121221, end: 20130509
  3. REVOLADE [Suspect]
     Indication: IMMUNE THROMBOCYTOPENIC PURPURA
     Route: 048
     Dates: start: 20130510, end: 20130912
  4. REVOLADE [Suspect]
     Indication: IMMUNE THROMBOCYTOPENIC PURPURA
     Route: 048
     Dates: start: 20130913, end: 20131209
  5. REVOLADE [Suspect]
     Indication: IMMUNE THROMBOCYTOPENIC PURPURA
     Route: 048
     Dates: start: 20131210, end: 20131211
  6. PREDNISOLONE [Suspect]
     Indication: IMMUNE THROMBOCYTOPENIC PURPURA
     Route: 048
  7. PREDNISOLONE [Suspect]
     Indication: IMMUNE THROMBOCYTOPENIC PURPURA
     Route: 048
  8. PREDNISOLONE [Suspect]
     Indication: IMMUNE THROMBOCYTOPENIC PURPURA
     Route: 048
  9. MUCODYNE [Concomitant]
     Route: 048
     Dates: end: 20131201
  10. HEAVY MAGNESIUM OXIDE [Concomitant]
     Route: 048
  11. HEAVY MAGNESIUM OXIDE [Concomitant]
     Route: 048
  12. FAMOTIDINE D [Concomitant]
     Route: 048
     Dates: end: 20131212
  13. AMLODIPINE [Concomitant]
     Route: 048
  14. BONALON [Concomitant]
     Route: 048
     Dates: start: 20130119
  15. FLUITRAN [Concomitant]
     Route: 048
     Dates: start: 20130311
  16. MUCOSOLVAN [Concomitant]
     Route: 048
     Dates: start: 20130502, end: 20131201
  17. FUROSEMIDE [Concomitant]
     Route: 048
     Dates: start: 20130610, end: 20130616
  18. URSO [Concomitant]
     Route: 048
     Dates: start: 20131107
  19. MYCOSYST [Concomitant]
     Indication: PROPHYLAXIS
     Route: 048
     Dates: start: 20131111, end: 20131201
  20. MYCOSYST [Concomitant]
     Indication: PROPHYLAXIS
     Route: 048
     Dates: start: 20131206
  21. FAMOTIDINE [Concomitant]
     Route: 048

REACTIONS (4)
  - Deep vein thrombosis [Fatal]
  - Pulmonary embolism [Fatal]
  - Disseminated intravascular coagulation [Fatal]
  - Liver disorder [Not Recovered/Not Resolved]
